FAERS Safety Report 14313039 (Version 1)
Quarter: 2017Q4

REPORT INFORMATION
  Report Type: Report from Study
  Country: DK (occurrence: DK)
  Receive Date: 20171221
  Receipt Date: 20171221
  Transmission Date: 20180321
  Serious: Yes (Other)
  Sender: FDA-Public Use
  Company Number: DK-CIPLA LTD.-2017DK25378

PATIENT

DRUGS (3)
  1. BEVACIZUMAB. [Suspect]
     Active Substance: BEVACIZUMAB
     Indication: BRAIN NEOPLASM
     Dosage: 10 MG/KG, OVER 90, 60, 30 MIN FOR THE FIRST SECOND AND SUBSEQUENT DOSES
     Route: 042
  2. ATROPINE. [Suspect]
     Active Substance: ATROPINE
     Indication: PROPHYLAXIS
     Dosage: 1 MG, GIVEN FOR 10 MIN
     Route: 058
  3. IRINOTECAN [Suspect]
     Active Substance: IRINOTECAN
     Indication: BRAIN NEOPLASM
     Dosage: UNK
     Route: 042

REACTIONS (1)
  - Toxicity to various agents [Unknown]
